FAERS Safety Report 8776106 (Version 2)
Quarter: 2012Q4

REPORT INFORMATION
  Report Type: 
  Country: US (occurrence: US)
  Receive Date: 20120831
  Receipt Date: 20120927
  Transmission Date: 20130627
  Serious: Yes (Death)
  Sender: FDA-Public Use
  Company Number: US-ELI_LILLY_AND_COMPANY-US201208009374

PATIENT
  Sex: Female
  Weight: 62.68 kg

DRUGS (16)
  1. FORTEO [Suspect]
     Indication: OSTEOPOROSIS
     Dosage: UNK, unknown
     Route: 058
     Dates: start: 20070417, end: 20090327
  2. CALCIUM WITH VITAMIN D [Concomitant]
     Dosage: UNK, tid
  3. SYNTHROID [Concomitant]
     Dosage: 0.1 mg, qd
  4. STOOL SOFTENER [Concomitant]
     Dosage: UNK, prn
  5. GABAPENTIN [Concomitant]
     Dosage: 300 mg, tid
  6. GABAPENTIN [Concomitant]
     Dosage: 400 mg, each evening
  7. METHOCARBAMOL [Concomitant]
     Dosage: 500 mg, each evening
  8. OMEPRAZOLE [Concomitant]
     Dosage: 20 mg, each morning
  9. TOLTERODINE TARTRATE [Concomitant]
     Dosage: 4 mg, each evening
  10. VITAMIN B COMPLEX [Concomitant]
     Dosage: UNK, qd
  11. BENADRYL                           /00000402/ [Concomitant]
     Dosage: 12.5 mg, each evening
  12. APAP [Concomitant]
     Dosage: UNK, bid
  13. RELEVE [Concomitant]
     Dosage: UNK, bid
  14. TRAMADOL [Concomitant]
     Dosage: 50 mg, qid
  15. IBUPROFEN [Concomitant]
     Dosage: 400 mg, each morning
  16. IBUPROFEN [Concomitant]
     Dosage: 800 mg, each evening

REACTIONS (2)
  - Myelodysplastic syndrome [Fatal]
  - Incorrect drug administration duration [Recovered/Resolved]
